FAERS Safety Report 9227088 (Version 4)
Quarter: 2013Q4

REPORT INFORMATION
  Report Type: Spontaneous
  Country: US (occurrence: None)
  Receive Date: 20130410
  Receipt Date: 20131011
  Transmission Date: 20140711
  Serious: Yes (Other)
  Sender: FDA-Public Use
  Company Number: AUR-APL-2013-02870

PATIENT
  Age: 75 Year
  Sex: Female
  Weight: 74.39 kg

DRUGS (9)
  1. MELOXICAM (MELOXICAM) [Suspect]
     Indication: PAIN
     Dosage: 15 MG (7.5 MG, 2 IN 1 D)
  2. MELOXICAM (MELOXICAM) [Suspect]
     Indication: ARTHROPATHY
     Dosage: 15 MG (7.5 MG, 2 IN 1 D)
  3. MELOXICAM (MELOXICAM) [Suspect]
     Indication: RHEUMATOID ARTHRITIS
     Dosage: 15 MG (7.5 MG, 2 IN 1 D)
  4. CELEBREX (CELECOXIB) [Suspect]
     Indication: RHEUMATOID ARTHRITIS
  5. ETODOLAC (ETODOLAC) [Suspect]
     Indication: PAIN
     Dosage: TWICE A DAY AS NEEDED (400 MG), UNKNOWN
  6. DICLOFENAC (DICLOFENAC) [Suspect]
     Indication: PAIN
     Dosage: 150 MG (75 MG, 2 IN 1 D) , UNKNOWN
  7. DICLOFENAC (DICLOFENAC) [Suspect]
     Indication: ARTHROPATHY
     Dosage: 150 MG (75 MG, 2 IN 1 D) , UNKNOWN
  8. ASPIRIN (ACETYLSALICYLIC ACID) [Suspect]
     Indication: PAIN
  9. ALEVE [Suspect]
     Indication: PAIN

REACTIONS (5)
  - Treatment noncompliance [None]
  - Economic problem [None]
  - Drug ineffective [None]
  - Pain [None]
  - Rheumatoid arthritis [None]
